FAERS Safety Report 25815595 (Version 1)
Quarter: 2025Q3

REPORT INFORMATION
  Report Type: Spontaneous
  Country: US (occurrence: US)
  Receive Date: 20250918
  Receipt Date: 20250918
  Transmission Date: 20251020
  Serious: No
  Sender: BRISTOL-MYERS SQUIBB COMPANY
  Company Number: US-BRISTOL-MYERS SQUIBB COMPANY-2025-128508

PATIENT
  Age: 56 Year
  Sex: Female

DRUGS (6)
  1. ORENCIA [Suspect]
     Active Substance: ABATACEPT
     Indication: Rheumatoid arthritis
     Dosage: EVERY OTHER WEEK
     Dates: start: 201609
  2. ORENCIA [Suspect]
     Active Substance: ABATACEPT
     Indication: Perineal pain
  3. ORENCIA [Suspect]
     Active Substance: ABATACEPT
     Indication: Uterine leiomyoma
  4. ORENCIA [Suspect]
     Active Substance: ABATACEPT
     Indication: Pain
  5. ORENCIA [Suspect]
     Active Substance: ABATACEPT
     Indication: Arthropathy
  6. ORENCIA [Suspect]
     Active Substance: ABATACEPT
     Indication: Osteoarthritis

REACTIONS (2)
  - Seasonal allergy [Unknown]
  - Sneezing [Unknown]
